FAERS Safety Report 7812753-0 (Version None)
Quarter: 2011Q4

REPORT INFORMATION
  Report Type: 
  Country: None (occurrence: None)
  Receive Date: 20111011
  Receipt Date: 20110907
  Transmission Date: 20120403
  Serious: Yes (Hospitalization)
  Sender: FDA-Public Use
  Company Number: DSA_47741_2011

PATIENT
  Age: 60 Year
  Sex: Female

DRUGS (7)
  1. ENALAPRIL MALEATE [Suspect]
     Indication: HYPERTENSION
     Dosage: (5 MG QD ORAL)
     Route: 048
     Dates: start: 20110706, end: 20110806
  2. LEVOTHYROXINE SODIUM [Concomitant]
  3. MESALAMINE [Concomitant]
  4. ISOPTIN [Suspect]
     Indication: HYPERTENSION
     Dosage: (120 MG QD ORAL)
     Route: 048
     Dates: start: 20110706, end: 20110806
  5. SODIUM PHOSPHATE [Concomitant]
  6. PHOSPHO LAX [Concomitant]
  7. PHENYLPROPANOLAMINE HCL [Concomitant]

REACTIONS (4)
  - HYPONATRAEMIA [None]
  - HYPOKALAEMIA [None]
  - CONSTIPATION [None]
  - DIVERTICULUM INTESTINAL [None]
